FAERS Safety Report 13143409 (Version 3)
Quarter: 2017Q1

REPORT INFORMATION
  Report Type: Spontaneous
  Country: DE (occurrence: DE)
  Receive Date: 20170123
  Receipt Date: 20170217
  Transmission Date: 20170428
  Serious: Yes (Hospitalization)
  Sender: FDA-Public Use
  Company Number: DE-TAKEDA-2017TUS001202

PATIENT
  Age: 26 Year
  Sex: Male

DRUGS (4)
  1. ENTYVIO [Suspect]
     Active Substance: VEDOLIZUMAB
     Dosage: UNK, Q4WEEKS
     Route: 065
     Dates: start: 20151001
  2. ENTYVIO [Suspect]
     Active Substance: VEDOLIZUMAB
     Indication: CROHN^S DISEASE
     Dosage: UNK
     Route: 065
     Dates: start: 20150130
  3. AZATHIOPRINE. [Concomitant]
     Active Substance: AZATHIOPRINE
     Indication: INFLAMMATORY BOWEL DISEASE
     Dosage: 150 MG, QD
  4. ZINK                               /00156501/ [Concomitant]
     Dosage: 30 MG, UNK

REACTIONS (19)
  - Cachexia [Unknown]
  - Gastrointestinal anastomotic leak [Unknown]
  - Prothrombin time prolonged [Unknown]
  - General physical health deterioration [Unknown]
  - Renal abscess [Unknown]
  - Wound [Not Recovered/Not Resolved]
  - Gastrointestinal oedema [Unknown]
  - Postoperative wound infection [Unknown]
  - Wound infection staphylococcal [Unknown]
  - Large intestinal stenosis [Unknown]
  - Vitamin D deficiency [Unknown]
  - Protein deficiency [Unknown]
  - Vomiting [Unknown]
  - Fistula [Recovered/Resolved]
  - Off label use [Unknown]
  - Abdominal adhesions [Unknown]
  - Anaemia [Unknown]
  - Gastrointestinal stoma complication [Unknown]
  - Purulence [Unknown]

NARRATIVE: CASE EVENT DATE: 2015
